FAERS Safety Report 10177684 (Version 1)
Quarter: 2014Q2

REPORT INFORMATION
  Report Type: Spontaneous
  Country: US (occurrence: US)
  Receive Date: 20140516
  Receipt Date: 20140516
  Transmission Date: 20141212
  Serious: Yes (Other)
  Sender: FDA-Public Use
  Company Number: US-SA-2014SA008385

PATIENT
  Age: 40 Year
  Sex: Female
  Weight: 87 kg

DRUGS (5)
  1. APIDRA [Suspect]
     Indication: TYPE 1 DIABETES MELLITUS
     Route: 058
     Dates: start: 20040604, end: 20140117
  2. APIDRA [Suspect]
     Indication: TYPE 1 DIABETES MELLITUS
     Route: 058
     Dates: start: 20040604, end: 20140117
  3. CYMBALTA [Concomitant]
     Indication: FIBROMYALGIA
     Dates: start: 200507
  4. LYRICA [Concomitant]
     Indication: FIBROMYALGIA
     Dosage: DOSE:75 UNIT(S)
     Dates: start: 201311
  5. NOVOLOG [Concomitant]
     Indication: DIABETES MELLITUS
     Dates: start: 200711

REACTIONS (6)
  - Drug hypersensitivity [Unknown]
  - Urticaria [Recovered/Resolved]
  - Choking sensation [Unknown]
  - Swelling [Recovered/Resolved]
  - Tachycardia [Unknown]
  - Rash [Unknown]
